FAERS Safety Report 12619597 (Version 2)
Quarter: 2016Q3

REPORT INFORMATION
  Report Type: Spontaneous
  Country: EG (occurrence: EG)
  Receive Date: 20160803
  Receipt Date: 20160815
  Transmission Date: 20161109
  Serious: Yes (Hospitalization, Other)
  Sender: FDA-Public Use
  Company Number: EG-PFIZER INC-2016369735

PATIENT
  Age: 18 Year

DRUGS (2)
  1. LYRICA [Suspect]
     Active Substance: PREGABALIN
     Indication: DRUG ABUSE
     Dosage: 4 OF 75 MG CAPSULES SINGLE DOSE
     Route: 048
     Dates: start: 20160730
  2. LYRICA [Suspect]
     Active Substance: PREGABALIN
     Dosage: 10 ^TABLETS^ OF PREGABALIN (LYRICA) 75 AT ONCE
     Dates: start: 20160731

REACTIONS (5)
  - Hypotension [Recovered/Resolved]
  - Product use issue [Unknown]
  - Overdose [Recovered/Resolved]
  - Salivary hypersecretion [Recovered/Resolved]
  - Coma [Recovered/Resolved]

NARRATIVE: CASE EVENT DATE: 20160731
